FAERS Safety Report 6087962-4 (Version None)
Quarter: 2009Q1

REPORT INFORMATION
  Report Type: 
  Country: None (occurrence: None)
  Receive Date: 20090213
  Receipt Date: 20090131
  Transmission Date: 20090719
  Serious: Yes (Hospitalization)
  Sender: FDA-Public Use
  Company Number: CHPA2009US01536

PATIENT
  Age: 21 Year
  Sex: Female

DRUGS (4)
  1. EXCEDRIN (MIGRAINE) [Suspect]
     Dosage: ORAL
     Route: 048
     Dates: start: 20090101
  2. SEROQUEL [Concomitant]
  3. PRISTIQ (DESVENLAFAXINE SUCCINATE) [Concomitant]
  4. TRAZODONE HCL [Concomitant]

REACTIONS (3)
  - HAEMATOCHEZIA [None]
  - INTENTIONAL DRUG MISUSE [None]
  - INTESTINAL HAEMORRHAGE [None]
